FAERS Safety Report 9053707 (Version 1)
Quarter: 2013Q1

REPORT INFORMATION
  Report Type: Spontaneous
  Country: US (occurrence: US)
  Receive Date: 20130208
  Receipt Date: 20130208
  Transmission Date: 20140127
  Serious: No
  Sender: FDA-Public Use
  Company Number: US-009507513-1301USA013288

PATIENT
  Sex: 0
  Weight: 77.55 kg

DRUGS (1)
  1. NEXPLANON [Suspect]
     Dosage: 1 DF, UNK
     Route: 059
     Dates: start: 20130124

REACTIONS (3)
  - Complication of device insertion [Unknown]
  - Device issue [Unknown]
  - No adverse event [Unknown]
